FAERS Safety Report 16446782 (Version 2)
Quarter: 2019Q3

REPORT INFORMATION
  Report Type: Not Available
  Country: US (occurrence: US)
  Receive Date: 20190618
  Receipt Date: 20190729
  Transmission Date: 20191004
  Serious: No
  Sender: FDA-Public Use
  Company Number: US-NEUROCRINE BIOSCIENCES INC.-2019NBI01555

PATIENT
  Age: 66 Year
  Sex: Female

DRUGS (1)
  1. INGREZZA [Suspect]
     Active Substance: VALBENAZINE
     Indication: TARDIVE DYSKINESIA
     Route: 048
     Dates: start: 20180810, end: 20190418

REACTIONS (4)
  - Balance disorder [Unknown]
  - Parkinson^s disease [Unknown]
  - Amnesia [Unknown]
  - Tremor [Unknown]

NARRATIVE: CASE EVENT DATE: 201808
